FAERS Safety Report 20184225 (Version 1)
Quarter: 2021Q4

REPORT INFORMATION
  Report Type: Spontaneous
  Country: US (occurrence: US)
  Receive Date: 20211214
  Receipt Date: 20211214
  Transmission Date: 20220303
  Serious: No
  Sender: FDA-Public Use
  Company Number: US-Teikoku Pharma USA-TPU2021-01126

PATIENT
  Sex: Male
  Weight: 113.50 kg

DRUGS (5)
  1. LIDOCAINE PATCH [Suspect]
     Active Substance: LIDOCAINE
     Indication: Muscle spasms
     Dosage: 1 PATCH TO THE MIDDLE OR BIGGEST PART OF HIS HIP, AND 1 PATCH ON THE HAMSTRING
     Route: 061
     Dates: start: 2021
  2. LIDOCAINE PATCH [Suspect]
     Active Substance: LIDOCAINE
     Indication: Sciatica
  3. ASPIRIN [Concomitant]
     Active Substance: ASPIRIN
  4. VITAMIN D [Concomitant]
     Active Substance: VITAMIN D NOS
  5. 5 other ^normal^ medications that has nothing to do with Lidocaine pat [Concomitant]

REACTIONS (1)
  - Prescription drug used without a prescription [Unknown]
